FAERS Safety Report 8997779 (Version 2)
Quarter: 2013Q1

REPORT INFORMATION
  Report Type: Report from Study
  Country: JP (occurrence: JP)
  Receive Date: 20130104
  Receipt Date: 20130220
  Transmission Date: 20140127
  Serious: Yes (Death)
  Sender: FDA-Public Use
  Company Number: JP-AMGEN-JPNCT2012084384

PATIENT
  Sex: Male
  Weight: 52 kg

DRUGS (13)
  1. DARBEPOETIN ALFA [Suspect]
     Indication: NEPHROGENIC ANAEMIA
     Dosage: 60 MUG, QD
     Route: 058
     Dates: start: 20101217, end: 20101217
  2. DARBEPOETIN ALFA [Suspect]
     Dosage: 60 MUG, QD
     Route: 058
     Dates: start: 20101230, end: 20101230
  3. DARBEPOETIN ALFA [Suspect]
     Dosage: 60 MUG, QD
     Route: 058
     Dates: start: 20110129, end: 20110129
  4. DARBEPOETIN ALFA [Suspect]
     Dosage: 60 MUG, QD
     Route: 058
     Dates: start: 20110201, end: 20110201
  5. DARBEPOETIN ALFA [Suspect]
     Dosage: 60 MUG, QD
     Route: 058
     Dates: start: 20110217, end: 20110217
  6. DARBEPOETIN ALFA [Suspect]
     Dosage: 60 MUG, QD
     Route: 058
     Dates: start: 20110224, end: 20110224
  7. DARBEPOETIN ALFA [Suspect]
     Dosage: 60 MUG, QD
     Route: 058
     Dates: start: 20110407, end: 20110407
  8. NATRIX [Concomitant]
     Dosage: UNK
     Route: 048
  9. CALBLOCK [Concomitant]
     Dosage: UNK
     Route: 048
  10. CARDENALIN [Concomitant]
     Dosage: UNK
     Route: 048
  11. HIRNAMIN [Concomitant]
     Dosage: UNK
     Route: 048
  12. BLOPRESS [Concomitant]
     Dosage: UNK
     Route: 048
  13. LUPRAC [Concomitant]
     Dosage: UNK
     Route: 048

REACTIONS (1)
  - Cardiac failure [Fatal]
